FAERS Safety Report 7810753-8 (Version None)
Quarter: 2011Q4

REPORT INFORMATION
  Report Type: 
  Country: None (occurrence: None)
  Receive Date: 20111006
  Receipt Date: 20110928
  Transmission Date: 20120403
  Serious: Yes (Other)
  Sender: FDA-Public Use
  Company Number: AUR-APL-2011-05280

PATIENT
  Sex: Female
  Weight: 73.9363 kg

DRUGS (6)
  1. ALENDRONATE SODIUM [Suspect]
     Indication: OSTEOPOROSIS
     Dosage: 10 MG (70 MG, 1 IN 1 WK), ORAL
     Route: 048
     Dates: start: 20110831
  2. CIPROFLOXACIN HYDROCHLORIDE [Suspect]
     Indication: DIVERTICULUM
     Dosage: 1000 MG (500 MG, 2 IN 1 DAY), ORAL
     Route: 048
     Dates: start: 20110824
  3. CIPROFLOXACIN HYDROCHLORIDE [Suspect]
     Indication: DIVERTICULUM
     Dosage: 1000 MG (500 MG, 2 IN 1 DAY), ORAL
     Route: 048
     Dates: start: 20110919
  4. METRONIDAZOLE [Concomitant]
     Indication: DIVERTICULUM
     Dosage: 1000 MG (500 MG, 2 IN 1 D), ORAL
     Route: 048
     Dates: start: 20110824
  5. METRONIDAZOLE [Concomitant]
     Indication: DIVERTICULUM
     Dosage: 1000 MG (500 MG, 2 IN 1 D), ORAL
     Route: 048
     Dates: start: 20110919
  6. SYNTHROID [Concomitant]

REACTIONS (4)
  - BACK PAIN [None]
  - OEDEMA PERIPHERAL [None]
  - ARTHRALGIA [None]
  - HYPERHIDROSIS [None]
